FAERS Safety Report 12398607 (Version 1)
Quarter: 2016Q2

REPORT INFORMATION
  Report Type: Spontaneous
  Country: US (occurrence: US)
  Receive Date: 20160524
  Receipt Date: 20160524
  Transmission Date: 20160815
  Serious: No
  Sender: FDA-Public Use
  Company Number: US-SA-200617416US

PATIENT
  Sex: Male

DRUGS (3)
  1. HUMALOG [Concomitant]
     Active Substance: INSULIN LISPRO
  2. LANTUS [Suspect]
     Active Substance: INSULIN GLARGINE
     Dosage: DOSE AS USED: UNK ? DOSE:8 UNIT(S)
     Route: 065
     Dates: start: 1998
  3. NOVOLOG [Concomitant]
     Active Substance: INSULIN ASPART

REACTIONS (4)
  - Glycosylated haemoglobin increased [Recovering/Resolving]
  - Weight decreased [Unknown]
  - Blood glucose decreased [Unknown]
  - Weight increased [Unknown]
